FAERS Safety Report 14460699 (Version 2)
Quarter: 2018Q1

REPORT INFORMATION
  Report Type: Report from Study
  Country: ES (occurrence: ES)
  Receive Date: 20180130
  Receipt Date: 20180321
  Transmission Date: 20180509
  Serious: Yes (Hospitalization)
  Sender: FDA-Public Use
  Company Number: ES-PFIZER INC-2018033846

PATIENT
  Sex: Male
  Weight: 83 kg

DRUGS (10)
  1. 5-FU /00098801/ [Suspect]
     Active Substance: FLUOROURACIL
     Dosage: 4680 MG, CYCLIC
     Route: 041
     Dates: start: 20141209, end: 20141209
  2. IRINOTECAN HCL [Suspect]
     Active Substance: IRINOTECAN HYDROCHLORIDE
     Dosage: 350 MG, CYCLIC
     Route: 041
     Dates: start: 20141209, end: 20141209
  3. 5-FU /00098801/ [Suspect]
     Active Substance: FLUOROURACIL
     Dosage: 4680 MG, CYCLIC
     Route: 041
     Dates: start: 20141125, end: 20141125
  4. 5-FU /00098801/ [Suspect]
     Active Substance: FLUOROURACIL
     Indication: COLORECTAL CANCER METASTATIC
     Dosage: 780 MG, CYCLIC
     Route: 040
     Dates: start: 20141125, end: 20141125
  5. LEUCOVORIN. [Suspect]
     Active Substance: LEUCOVORIN
     Dosage: 780 MG, CYCLIC
     Route: 041
     Dates: start: 20141209, end: 20141209
  6. IRINOTECAN HCL [Suspect]
     Active Substance: IRINOTECAN HYDROCHLORIDE
     Indication: COLORECTAL CANCER METASTATIC
     Dosage: 350 MG, CYCLIC
     Route: 041
     Dates: start: 20141125, end: 20141125
  7. 5-FU /00098801/ [Suspect]
     Active Substance: FLUOROURACIL
     Dosage: 780 MG, CYCLIC
     Route: 040
     Dates: start: 20141209, end: 20141209
  8. AFLIBERCEPT [Suspect]
     Active Substance: AFLIBERCEPT
     Indication: COLORECTAL CANCER METASTATIC
     Dosage: 340 MG, CYCLIC
     Route: 041
     Dates: start: 20141125, end: 20141125
  9. LEUCOVORIN. [Suspect]
     Active Substance: LEUCOVORIN
     Indication: COLORECTAL CANCER METASTATIC
     Dosage: 780 MG, CYCLIC
     Route: 041
     Dates: start: 20141125, end: 20141125
  10. AFLIBERCEPT [Suspect]
     Active Substance: AFLIBERCEPT
     Dosage: 340 MG, CYCLIC
     Route: 041
     Dates: start: 20141209, end: 20141209

REACTIONS (6)
  - Thrombocytopenia [Recovered/Resolved]
  - Stomatitis [Recovered/Resolved]
  - Asthenia [Recovered/Resolved]
  - Decreased appetite [Recovered/Resolved]
  - Abdominal pain [Recovered/Resolved]
  - Neutropenia [Recovered/Resolved]

NARRATIVE: CASE EVENT DATE: 20141215
